FAERS Safety Report 25178815 (Version 1)
Quarter: 2025Q2

REPORT INFORMATION
  Report Type: Spontaneous
  Country: PL (occurrence: PL)
  Receive Date: 20250409
  Receipt Date: 20250409
  Transmission Date: 20250717
  Serious: Yes (Disabling, Other)
  Sender: MERCK SHARP AND DOHME
  Company Number: PL-009507513-2257113

PATIENT

DRUGS (2)
  1. M-M-RVAXPRO [Suspect]
     Active Substance: MEASLES VIRUS STRAIN ENDERS^ ATTENUATED EDMONSTON LIVE ANTIGEN\MUMPS VIRUS STRAIN B LEVEL JERYL LYNN
     Indication: Prophylaxis
  2. STERILE DILUENT (WATER) [Suspect]
     Active Substance: WATER

REACTIONS (9)
  - Dermatitis atopic [Not Recovered/Not Resolved]
  - Allergy to chemicals [Unknown]
  - Adverse event following immunisation [Unknown]
  - Eosinophil count abnormal [Not Recovered/Not Resolved]
  - Product use issue [Unknown]
  - Anaphylactic reaction [Unknown]
  - Asthma [Not Recovered/Not Resolved]
  - Neurological symptom [Unknown]
  - Hypersensitivity [Not Recovered/Not Resolved]
